FAERS Safety Report 7220908-1 (Version None)
Quarter: 2011Q1

REPORT INFORMATION
  Report Type: 
  Country: None (occurrence: None)
  Receive Date: 20110112
  Receipt Date: 20101111
  Transmission Date: 20110831
  Serious: No
  Sender: FDA-Public Use
  Company Number: A0892029A

PATIENT
  Sex: Male

DRUGS (10)
  1. NITROGLYCERIN [Concomitant]
  2. VALIUM [Concomitant]
  3. TOPROL-XL [Concomitant]
  4. RANEXA [Concomitant]
  5. ASPIRIN [Concomitant]
  6. JALYN [Suspect]
     Dosage: 1CAP PER DAY
     Route: 048
     Dates: start: 20101020
  7. PLAVIX [Concomitant]
  8. SOMA [Concomitant]
  9. ZOCOR [Concomitant]
  10. HYDROCODONE [Concomitant]

REACTIONS (5)
  - VISUAL IMPAIRMENT [None]
  - SLEEP DISORDER [None]
  - URTICARIA [None]
  - RASH [None]
  - PRURITUS [None]
